FAERS Safety Report 6623760-8 (Version None)
Quarter: 2010Q1

REPORT INFORMATION
  Report Type: 
  Country: None (occurrence: None)
  Receive Date: 20100310
  Receipt Date: 20091118
  Transmission Date: 20100710
  Serious: Yes (Hospitalization)
  Sender: FDA-Public Use
  Company Number: US-BIOGENIDEC-2009BI037642

PATIENT
  Age: 40 Year
  Sex: Female

DRUGS (6)
  1. AVONEX [Suspect]
     Indication: MULTIPLE SCLEROSIS
     Route: 030
     Dates: start: 20090328
  2. SEROQUEL [Concomitant]
     Indication: DEPRESSION
  3. SEROQUEL [Concomitant]
     Indication: SLEEP DISORDER
  4. LYRICA [Concomitant]
     Indication: PAIN
  5. NEURONTIN [Concomitant]
  6. CYMBALTA [Concomitant]
     Indication: MENTAL DISORDER

REACTIONS (7)
  - ABDOMINAL DISCOMFORT [None]
  - DRUG INTERACTION [None]
  - HYPERAESTHESIA [None]
  - HYPERTENSION [None]
  - INSOMNIA [None]
  - MULTIPLE SCLEROSIS RELAPSE [None]
  - SLEEP DISORDER [None]
